FAERS Safety Report 4956162-0 (Version None)
Quarter: 2006Q1

REPORT INFORMATION
  Report Type: 
  Country: None (occurrence: None)
  Receive Date: 20060322
  Receipt Date: 20060314
  Transmission Date: 20060701
  Serious: Yes (Other)
  Sender: FDA-Public Use
  Company Number: 2006-03-1044

PATIENT
  Age: 41 Year
  Sex: Female

DRUGS (2)
  1. NASONEX [Suspect]
     Indication: MULTIPLE ALLERGIES
     Dosage: NASAL SPRAY
     Route: 045
     Dates: start: 20050101
  2. NASONEX [Suspect]
     Indication: NASAL DISORDER
     Dosage: NASAL SPRAY
     Route: 045
     Dates: start: 20050101

REACTIONS (1)
  - CATARACT [None]
